FAERS Safety Report 21349139 (Version 1)
Quarter: 2022Q3

REPORT INFORMATION
  Report Type: Spontaneous
  Country: CN (occurrence: None)
  Receive Date: 20220919
  Receipt Date: 20220919
  Transmission Date: 20221027
  Serious: Yes (Other)
  Sender: FDA-Public Use
  Company Number: CN-ROCHE-3179544

PATIENT
  Age: 2 Year
  Sex: Male
  Weight: 13.2 kg

DRUGS (2)
  1. RITUXIMAB [Suspect]
     Active Substance: RITUXIMAB
     Indication: Factor VIII deficiency
     Dosage: 0.1G ONCE PER DAY IVGTT
     Route: 041
     Dates: start: 20220824, end: 20220824
  2. METHYLPREDNISOLONE SODIUM SUCCINATE [Suspect]
     Active Substance: METHYLPREDNISOLONE SODIUM SUCCINATE
     Indication: Factor VIII deficiency
     Route: 041
     Dates: start: 20220824, end: 20220824

REACTIONS (2)
  - Anaphylactoid reaction [Recovering/Resolving]
  - Off label use [Unknown]

NARRATIVE: CASE EVENT DATE: 20220824
